FAERS Safety Report 7298569-5 (Version None)
Quarter: 2011Q1

REPORT INFORMATION
  Report Type: 
  Country: None (occurrence: None)
  Receive Date: 20110217
  Receipt Date: 20110203
  Transmission Date: 20110831
  Serious: Yes (Other)
  Sender: FDA-Public Use
  Company Number: US-CELGENEUS-163-21880-11020922

PATIENT
  Sex: Female

DRUGS (6)
  1. REVLIMID [Suspect]
     Route: 048
     Dates: start: 20100301
  2. PROPRANOLOL [Concomitant]
     Route: 065
  3. SPIRIVA [Concomitant]
     Route: 065
  4. REVLIMID [Suspect]
     Indication: MYELOFIBROSIS
     Route: 048
     Dates: start: 20081201
  5. REVLIMID [Suspect]
     Route: 048
     Dates: start: 20100401
  6. PREDNISONE TAB [Concomitant]
     Route: 065

REACTIONS (2)
  - MYALGIA [None]
  - SCLERODERMA [None]
